FAERS Safety Report 6052399-0 (Version None)
Quarter: 2009Q1

REPORT INFORMATION
  Report Type: 
  Country: None (occurrence: None)
  Receive Date: 20090121
  Receipt Date: 20090107
  Transmission Date: 20090719
  Serious: Yes (Life-Threatening, Hospitalization, Disabling)
  Sender: FDA-Public Use
  Company Number: MC200900004

PATIENT
  Sex: Male

DRUGS (1)
  1. ANGIOMAX [Suspect]
     Indication: PERCUTANEOUS CORONARY INTERVENTION

REACTIONS (3)
  - CEREBROVASCULAR ACCIDENT [None]
  - CORONARY ARTERY THROMBOSIS [None]
  - PROCEDURAL COMPLICATION [None]
